FAERS Safety Report 5269250-9 (Version None)
Quarter: 2007Q1

REPORT INFORMATION
  Report Type: 
  Country: None (occurrence: None)
  Receive Date: 20070319
  Receipt Date: 20070309
  Transmission Date: 20070707
  Serious: Yes (Hospitalization)
  Sender: FDA-Public Use
  Company Number: FR-ABBOTT-07P-056-0361639-00

PATIENT
  Age: 44 Year
  Sex: Male

DRUGS (6)
  1. DEPAKENE [Suspect]
     Indication: DRUG USE FOR UNKNOWN INDICATION
     Route: 048
     Dates: start: 20061219, end: 20070124
  2. HEPARIN-FRACTION, SODIUM SALT [Suspect]
     Indication: DRUG USE FOR UNKNOWN INDICATION
     Route: 058
     Dates: start: 20061219, end: 20070124
  3. RAMIPRIL [Suspect]
     Indication: DRUG USE FOR UNKNOWN INDICATION
     Route: 048
     Dates: start: 20070119, end: 20070124
  4. LORAZEPAM [Suspect]
     Indication: DRUG USE FOR UNKNOWN INDICATION
     Route: 048
     Dates: start: 20061219, end: 20070124
  5. NEXIUM [Suspect]
     Indication: DRUG USE FOR UNKNOWN INDICATION
     Route: 048
     Dates: start: 20061219, end: 20070124
  6. LOXEN PR [Suspect]
     Indication: DRUG USE FOR UNKNOWN INDICATION
     Route: 048
     Dates: start: 20061219, end: 20070124

REACTIONS (4)
  - AGRANULOCYTOSIS [None]
  - RHEUMATOID FACTOR INCREASED [None]
  - SPLENOMEGALY [None]
  - WHITE BLOOD CELL COUNT INCREASED [None]
